FAERS Safety Report 20216776 (Version 2)
Quarter: 2022Q1

REPORT INFORMATION
  Report Type: Spontaneous
  Country: IT (occurrence: IT)
  Receive Date: 20211222
  Receipt Date: 20220117
  Transmission Date: 20220423
  Serious: Yes (Other)
  Sender: FDA-Public Use
  Company Number: IT-LUPIN PHARMACEUTICALS INC.-2021-25234

PATIENT
  Age: 23 Year
  Sex: Female

DRUGS (4)
  1. LEVETIRACETAM [Suspect]
     Active Substance: LEVETIRACETAM
     Indication: Epilepsy
     Dosage: 1000 MILLIGRAM, QD
     Route: 065
  2. ACETAZOLAMIDE [Concomitant]
     Active Substance: ACETAZOLAMIDE
     Indication: Hereditary ataxia
     Dosage: 250 MILLIGRAM
     Route: 065
  3. VORTIOXETINE [Concomitant]
     Active Substance: VORTIOXETINE
     Indication: Antipsychotic therapy
     Dosage: UNK
     Route: 065
  4. ALPRAZOLAM [Concomitant]
     Active Substance: ALPRAZOLAM
     Indication: Antipsychotic therapy
     Dosage: UNK
     Route: 065

REACTIONS (2)
  - Depression [Unknown]
  - Suicidal ideation [Unknown]
